FAERS Safety Report 25956761 (Version 2)
Quarter: 2025Q4

REPORT INFORMATION
  Report Type: Spontaneous
  Country: US (occurrence: US)
  Receive Date: 20251024
  Receipt Date: 20251030
  Transmission Date: 20260118
  Serious: Yes (Other)
  Sender: GALDERMA
  Company Number: US-GALDERMA-US2025020888

PATIENT

DRUGS (5)
  1. NEMLUVIO [Suspect]
     Active Substance: NEMOLIZUMAB-ILTO
     Indication: Rash
     Dosage: UNK
     Route: 058
     Dates: start: 2025, end: 2025
  2. NEMLUVIO [Suspect]
     Active Substance: NEMOLIZUMAB-ILTO
     Indication: Pruritus
     Dosage: UNK
     Route: 058
     Dates: start: 2025, end: 2025
  3. NEMLUVIO [Suspect]
     Active Substance: NEMOLIZUMAB-ILTO
     Indication: Haemorrhage
     Dosage: UNK
     Route: 058
     Dates: start: 202509, end: 202509
  4. ELIQUIS [Concomitant]
     Active Substance: APIXABAN
     Indication: Anticoagulant therapy
     Route: 065
  5. VITAMIN D3 [Concomitant]
     Active Substance: CHOLECALCIFEROL
     Indication: Product used for unknown indication
     Dosage: UNK
     Route: 065

REACTIONS (5)
  - Pneumonia viral [Unknown]
  - Dyspnoea [Unknown]
  - Pain in extremity [Unknown]
  - Speech disorder [Unknown]
  - Intentional product use issue [Recovered/Resolved]

NARRATIVE: CASE EVENT DATE: 20250101
